FAERS Safety Report 8127092-0 (Version None)
Quarter: 2012Q1

REPORT INFORMATION
  Report Type: 
  Country: None (occurrence: None)
  Receive Date: 20120210
  Receipt Date: 20120203
  Transmission Date: 20120608
  Serious: Yes (Hospitalization)
  Sender: FDA-Public Use
  Company Number: DE-US-EMD SERONO, INC.-7109336

PATIENT
  Sex: Female
  Weight: 74 kg

DRUGS (3)
  1. AMLODIPINE [Suspect]
     Indication: HYPERTENSION
     Dates: start: 20110101
  2. REBIF [Suspect]
     Indication: MULTIPLE SCLEROSIS
     Route: 058
     Dates: start: 20070101
  3. LEVOTHYROXINE SODIUM [Suspect]
     Indication: HORMONE REPLACEMENT THERAPY
     Dates: start: 20120121

REACTIONS (1)
  - HYPERTENSION [None]
